FAERS Safety Report 4379342-4 (Version None)
Quarter: 2004Q2

REPORT INFORMATION
  Report Type: 
  Country: None (occurrence: None)
  Receive Date: 20040610
  Receipt Date: 20040528
  Transmission Date: 20050107
  Serious: Yes (Other)
  Sender: FDA-Public Use
  Company Number: 2004023523

PATIENT
  Age: 62 Year
  Sex: Female
  Weight: 69.8539 kg

DRUGS (3)
  1. NEURONTIN [Suspect]
     Indication: BACK PAIN
     Dosage: 900 MG (TID), ORAL
     Route: 048
     Dates: start: 20020320
  2. LEVOTHYROXINE SODIUM [Concomitant]
  3. LIDOCAINE HYDROCHLORIDE [Concomitant]

REACTIONS (4)
  - DIZZINESS [None]
  - NUCLEAR MAGNETIC RESONANCE IMAGING BRAIN ABNORMAL [None]
  - SUDDEN HEARING LOSS [None]
  - TINNITUS [None]
